FAERS Safety Report 6433084-X (Version None)
Quarter: 2009Q4

REPORT INFORMATION
  Report Type: 
  Country: None (occurrence: None)
  Receive Date: 20091105
  Receipt Date: 20091028
  Transmission Date: 20100525
  Serious: Yes (Hospitalization)
  Sender: FDA-Public Use
  Company Number: DSA_41900_2009

PATIENT
  Age: 73 Year
  Sex: Female

DRUGS (12)
  1. XENAZINE [Suspect]
     Indication: HUNTINGTON'S CHOREA
     Dosage: (12.5 MG QD ORAL)
     Route: 048
     Dates: start: 20090617, end: 20090925
  2. ASPIRIN [Concomitant]
  3. ISORDIL [Concomitant]
  4. LORAZEPAM [Concomitant]
  5. IMODIUM /00384302 [Concomitant]
  6. AMLODIPINE [Concomitant]
  7. MICARDIS [Concomitant]
  8. DEXAMETHASONE [Concomitant]
  9. ATENOLOL [Concomitant]
  10. LASIX [Concomitant]
  11. FOLIC ACID [Concomitant]
  12. CALCITRIOL [Concomitant]

REACTIONS (5)
  - CARDIAC FAILURE CONGESTIVE [None]
  - DEHYDRATION [None]
  - DIARRHOEA [None]
  - DYSPNOEA [None]
  - MALNUTRITION [None]
